FAERS Safety Report 7808216-9 (Version None)
Quarter: 2011Q4

REPORT INFORMATION
  Report Type: 
  Country: None (occurrence: None)
  Receive Date: 20111011
  Receipt Date: 20110921
  Transmission Date: 20120403
  Serious: Yes (Hospitalization)
  Sender: FDA-Public Use
  Company Number: PHHY2011US34539

PATIENT
  Sex: Female

DRUGS (10)
  1. CLARITIN [Concomitant]
     Dosage: UNK UKN, UNK
  2. ATENOLOL [Concomitant]
     Dosage: 25 MG,
  3. AVALIDE [Concomitant]
     Dosage: UNK UKN, UNK
  4. PAXIL [Concomitant]
     Dosage: UNK UKN, UNK
  5. AMBIEN [Concomitant]
     Dosage: UNK UKN, UNK
  6. TYLENOL-500 [Concomitant]
     Dosage: UNK UKN, UNK
  7. NEXIUM [Concomitant]
     Dosage: UNK UKN, UNK
  8. LIPITOR [Concomitant]
     Dosage: UNK UKN, UNK
  9. XANAX [Concomitant]
     Dosage: UNK UKN, UNK
  10. COMBIPATCH [Suspect]
     Indication: HOT FLUSH
     Dosage: UNK UKN, UNK
     Route: 062

REACTIONS (8)
  - STRESS [None]
  - BREAST SWELLING [None]
  - HYPERTENSION [None]
  - MUSCLE SPASMS [None]
  - POLYP [None]
  - VAGINAL HAEMORRHAGE [None]
  - PAIN [None]
  - BREAST TENDERNESS [None]
